FAERS Safety Report 7009011-3 (Version None)
Quarter: 2010Q3

REPORT INFORMATION
  Report Type: 
  Country: None (occurrence: None)
  Receive Date: 20100923
  Receipt Date: 20100827
  Transmission Date: 20110219
  Serious: Yes (Other)
  Sender: FDA-Public Use
  Company Number: US-BAYER-201034101NA

PATIENT
  Sex: Female

DRUGS (1)
  1. MIRENA [Suspect]
     Indication: PRODUCT USED FOR UNKNOWN INDICATION
     Dosage: FREQUENCY:CONTINUOUS
     Route: 015
     Dates: start: 20100108

REACTIONS (3)
  - PELVIC PAIN [None]
  - UTERINE INFECTION [None]
  - UTERINE INFLAMMATION [None]
